FAERS Safety Report 6138055-9 (Version None)
Quarter: 2009Q1

REPORT INFORMATION
  Report Type: 
  Country: None (occurrence: None)
  Receive Date: 20090327
  Receipt Date: 20090327
  Transmission Date: 20090719
  Serious: Yes (Other)
  Sender: FDA-Public Use
  Company Number: None

PATIENT
  Age: 75 Year
  Sex: Male
  Weight: 74.8435 kg

DRUGS (1)
  1. SOLARAZE [Suspect]
     Indication: HYPERKERATOSIS
     Dosage: APPLY TO SKIN TWICE A DAY TOP
     Route: 061
     Dates: start: 20090128, end: 20090325

REACTIONS (1)
  - DRUG HYPERSENSITIVITY [None]
